FAERS Safety Report 19617580 (Version 1)
Quarter: 2021Q3

REPORT INFORMATION
  Report Type: Spontaneous
  Country: US (occurrence: US)
  Receive Date: 20210727
  Receipt Date: 20210727
  Transmission Date: 20211014
  Serious: No
  Sender: FDA-Public Use
  Company Number: US-ABBVIE-21K-163-3917056-00

PATIENT
  Sex: Female

DRUGS (1)
  1. ORILISSA [Suspect]
     Active Substance: ELAGOLIX SODIUM
     Indication: PRODUCT USED FOR UNKNOWN INDICATION
     Route: 048
     Dates: start: 2018

REACTIONS (9)
  - Unevaluable event [Unknown]
  - Obsessive thoughts [Unknown]
  - Migraine [Not Recovered/Not Resolved]
  - Illness [Unknown]
  - Malaise [Unknown]
  - Mobility decreased [Unknown]
  - General physical condition abnormal [Not Recovered/Not Resolved]
  - Pain [Unknown]
  - Discomfort [Unknown]
